FAERS Safety Report 9331388 (Version 1)
Quarter: 2013Q2

REPORT INFORMATION
  Report Type: Spontaneous
  Country: AU (occurrence: AU)
  Receive Date: 20130605
  Receipt Date: 20130605
  Transmission Date: 20140414
  Serious: Yes (Other)
  Sender: FDA-Public Use
  Company Number: PHHY2013AU056537

PATIENT
  Sex: Female

DRUGS (1)
  1. ACLASTA [Suspect]
     Indication: BONE DISORDER
     Dosage: UNK
     Route: 042
     Dates: start: 201206

REACTIONS (4)
  - Inflammation [Unknown]
  - Rheumatoid arthritis [Unknown]
  - Tooth discolouration [Unknown]
  - Pain [Unknown]
